FAERS Safety Report 5191584-7 (Version None)
Quarter: 2006Q4

REPORT INFORMATION
  Report Type: 
  Country: None (occurrence: None)
  Receive Date: 20061219
  Receipt Date: 20061204
  Transmission Date: 20070319
  Serious: Yes (Death, Hospitalization)
  Sender: FDA-Public Use
  Company Number: 2006BH013328

PATIENT
  Age: 57 Year
  Sex: Male
  Weight: 65 kg

DRUGS (13)
  1. EXTRANEAL [Suspect]
     Indication: RENAL FAILURE CHRONIC
     Dosage: IP
     Route: 033
     Dates: start: 20001201, end: 20060401
  2. DIANEAL PD-1 [Suspect]
     Indication: RENAL FAILURE CHRONIC
     Dosage: IP
     Route: 033
     Dates: start: 20001201, end: 20060401
  3. DIANEAL [Suspect]
     Indication: DIABETIC END STAGE RENAL DISEASE
     Dosage: IP
     Route: 033
     Dates: start: 20001201, end: 20060401
  4. PANTOZOL [Concomitant]
  5. MADOPAR [Concomitant]
  6. DIDANOSINE [Concomitant]
  7. EFAVIRENZ [Concomitant]
  8. LAMIVUDINE [Concomitant]
  9. PRAMIPEXOLE DIHYDROCHLORIDE [Concomitant]
  10. BACTRIM [Concomitant]
  11. BELOC ZOK [Concomitant]
  12. CRANOC [Concomitant]
  13. PANOTILE [Concomitant]

REACTIONS (3)
  - MULTI-ORGAN FAILURE [None]
  - PERITONITIS SCLEROSING [None]
  - SEPSIS [None]
